FAERS Safety Report 9234514 (Version 1)
Quarter: 2013Q2

REPORT INFORMATION
  Report Type: Spontaneous
  Country: PT (occurrence: PT)
  Receive Date: 20130416
  Receipt Date: 20130416
  Transmission Date: 20140414
  Serious: Yes (Death)
  Sender: FDA-Public Use
  Company Number: PT-GLAXOSMITHKLINE-B0864464A

PATIENT
  Age: 58 Year
  Sex: Male

DRUGS (2)
  1. VOTRIENT [Suspect]
     Indication: METASTATIC RENAL CELL CARCINOMA
     Route: 048
     Dates: start: 20121226, end: 20130123
  2. SUNITINIB [Concomitant]
     Indication: PRODUCT USED FOR UNKNOWN INDICATION
     Route: 065

REACTIONS (5)
  - Metastatic renal cell carcinoma [Fatal]
  - Metastases to bone [Fatal]
  - Metastases to bone marrow [Fatal]
  - Disease progression [Fatal]
  - Thrombocytopenia [Fatal]
